FAERS Safety Report 8200694-9 (Version None)
Quarter: 2012Q1

REPORT INFORMATION
  Report Type: 
  Country: None (occurrence: None)
  Receive Date: 20120307
  Receipt Date: 20120229
  Transmission Date: 20120608
  Serious: Yes (Hospitalization)
  Sender: FDA-Public Use
  Company Number: USA/GER/12/0023282

PATIENT
  Age: 33 Year

DRUGS (4)
  1. LAMICTAL [Concomitant]
  2. QUETIAPINE FUMARATE [Concomitant]
  3. OLANZAPINE [Suspect]
     Indication: BIPOLAR DISORDER
     Dosage: 2.5 MG, 1 D
  4. TRAZODONE HCL [Concomitant]

REACTIONS (3)
  - DRY THROAT [None]
  - VOMITING [None]
  - ANAPHYLACTIC SHOCK [None]
